FAERS Safety Report 13737692 (Version 1)
Quarter: 2017Q3

REPORT INFORMATION
  Report Type: Spontaneous
  Country: US (occurrence: US)
  Receive Date: 20170710
  Receipt Date: 20170710
  Transmission Date: 20171127
  Serious: No
  Sender: FDA-Public Use
  Company Number: US-SAOL THERAPEUTICS-2016SAO00182

PATIENT
  Age: 67 Year
  Sex: Female

DRUGS (7)
  1. LIORESAL [Suspect]
     Active Substance: BACLOFEN
     Indication: MUSCLE SPASTICITY
     Dosage: 185 ?G, \DAY
     Route: 037
  2. KEPPRA [Concomitant]
     Active Substance: LEVETIRACETAM
     Dosage: 1000 MG, 2X/DAY
  3. LIORESAL [Suspect]
     Active Substance: BACLOFEN
     Dosage: 162.8 ?G, \DAY
  4. LEVOTHYROXINE. [Concomitant]
     Active Substance: LEVOTHYROXINE
     Dosage: 75 ?G, 1X/DAY
  5. PRAVASTATIN. [Concomitant]
     Active Substance: PRAVASTATIN
     Dosage: 20 MG AT BEDTIME
  6. DULOXETINE. [Concomitant]
     Active Substance: DULOXETINE
     Dosage: 60 MG, 1X/DAY
  7. BACLOFEN. [Suspect]
     Active Substance: BACLOFEN
     Dosage: 10 MG, AS NEEDED
     Route: 048

REACTIONS (4)
  - Muscle spasticity [Not Recovered/Not Resolved]
  - Device battery issue [Recovered/Resolved]
  - Device damage [Not Recovered/Not Resolved]
  - Fall [Recovered/Resolved]

NARRATIVE: CASE EVENT DATE: 201506
